FAERS Safety Report 10623051 (Version 2)
Quarter: 2014Q4

REPORT INFORMATION
  Report Type: Report from Study
  Country: US (occurrence: US)
  Receive Date: 20141203
  Receipt Date: 20141203
  Transmission Date: 20150529
  Serious: Yes (Other)
  Sender: FDA-Public Use
  Company Number: US-GLAXOSMITHKLINE-Z0022612A

PATIENT
  Age: 62 Year
  Sex: Male
  Weight: 73.7 kg

DRUGS (4)
  1. DABRAFENIB CAPSULE [Suspect]
     Active Substance: DABRAFENIB
     Dosage: 150 MG, BID
     Route: 048
     Dates: start: 20140403
  2. TRAMETINIB TABLET [Suspect]
     Active Substance: TRAMETINIB
     Indication: MALIGNANT MELANOMA
     Dosage: 1 MG, 1D
     Dates: start: 20140224, end: 20140309
  3. DABRAFENIB CAPSULE [Suspect]
     Active Substance: DABRAFENIB
     Indication: MALIGNANT MELANOMA
     Dosage: 100 MG, BID
     Route: 048
     Dates: start: 20140224
  4. IPILIMUMAB SOLUTION FOR INFUSION [Suspect]
     Active Substance: IPILIMUMAB
     Indication: MALIGNANT MELANOMA
     Dosage: 3 MG/KG, CYC
     Route: 042
     Dates: start: 20140224

REACTIONS (1)
  - Squamous cell carcinoma of skin [Recovered/Resolved]

NARRATIVE: CASE EVENT DATE: 20140429
